FAERS Safety Report 4361633-4 (Version None)
Quarter: 2004Q2

REPORT INFORMATION
  Report Type: 
  Country: None (occurrence: None)
  Receive Date: 20040517
  Receipt Date: 20040430
  Transmission Date: 20050107
  Serious: Yes (Hospitalization)
  Sender: FDA-Public Use
  Company Number: S04-USA-01205-01

PATIENT
  Age: 89 Year
  Sex: Female

DRUGS (1)
  1. NAMENDA [Suspect]
     Indication: DEMENTIA ALZHEIMER'S TYPE
     Dates: start: 20040301

REACTIONS (5)
  - ASTHENIA [None]
  - DIZZINESS [None]
  - FALL [None]
  - NAUSEA [None]
  - TREMOR [None]
